FAERS Safety Report 16918086 (Version 1)
Quarter: 2019Q4

REPORT INFORMATION
  Report Type: Spontaneous
  Country: US (occurrence: US)
  Receive Date: 20191015
  Receipt Date: 20191015
  Transmission Date: 20200122
  Serious: Yes (Hospitalization)
  Sender: FDA-Public Use
  Company Number: US-PARATEK PHARMACEUTICALS, INC.-2019PTK00115

PATIENT
  Age: 71 Year
  Sex: Female

DRUGS (1)
  1. NUZYRA [Suspect]
     Active Substance: OMADACYCLINE
     Indication: BACTERIAL INFECTION
     Dosage: 450 MG, 1X/DAY
     Route: 048
     Dates: start: 20190904, end: 201909

REACTIONS (3)
  - Drug dose titration not performed [Unknown]
  - Hospitalisation [Unknown]
  - Off label use [Recovered/Resolved]

NARRATIVE: CASE EVENT DATE: 201909
